FAERS Safety Report 4539807-9 (Version None)
Quarter: 2004Q4

REPORT INFORMATION
  Report Type: 
  Country: None (occurrence: None)
  Receive Date: 20041222
  Receipt Date: 20041214
  Transmission Date: 20050328
  Serious: Yes (Other)
  Sender: FDA-Public Use
  Company Number: 2004113755

PATIENT
  Age: 45 Year
  Sex: Male
  Weight: 83.9154 kg

DRUGS (5)
  1. NORVASC [Suspect]
     Indication: HEADACHE
     Dosage: 10 MG (10 MG, 1 IN 1 D), ORAL
     Route: 048
     Dates: start: 19990101
  2. OXYCODONE (OXYCODONE) [Concomitant]
  3. ROSUVASTATIN (ROSUVASTATIN) [Concomitant]
  4. RABEPRAZOLE SODIUM [Concomitant]
  5. CLONAZEPAM [Concomitant]

REACTIONS (7)
  - CONDITION AGGRAVATED [None]
  - HEADACHE [None]
  - IMPAIRED HEALING [None]
  - POST PROCEDURAL COMPLICATION [None]
  - SPINAL FUSION SURGERY [None]
  - THERAPY NON-RESPONDER [None]
  - TREATMENT NONCOMPLIANCE [None]
